FAERS Safety Report 9219598 (Version 1)
Quarter: 2013Q2

REPORT INFORMATION
  Report Type: Spontaneous
  Country: US (occurrence: None)
  Receive Date: 20130405
  Receipt Date: 20130405
  Transmission Date: 20140414
  Serious: Yes (Hospitalization, Other)
  Sender: FDA-Public Use
  Company Number: A-13-081

PATIENT
  Age: 36 Year
  Sex: Male

DRUGS (6)
  1. SALBUTAMOL [Suspect]
     Indication: ASTHMA
     Dosage: ONCE 054
  2. DICLOFENAC [Concomitant]
  3. QUETIAPINE [Concomitant]
  4. ACETAMINOPHEN [Concomitant]
  5. SALBUTAMOL [Concomitant]
  6. FLUTICASONE [Concomitant]

REACTIONS (13)
  - Dyspnoea [None]
  - Productive cough [None]
  - Pyrexia [None]
  - Chills [None]
  - Chest pain [None]
  - Heart rate increased [None]
  - Respiratory rate increased [None]
  - Wheezing [None]
  - Toxicity to various agents [None]
  - Metabolic acidosis [None]
  - Respiratory alkalosis [None]
  - Asthma [None]
  - Lactic acidosis [None]
